FAERS Safety Report 8227060-4 (Version None)
Quarter: 2012Q1

REPORT INFORMATION
  Report Type: 
  Country: None (occurrence: None)
  Receive Date: 20120322
  Receipt Date: 20120319
  Transmission Date: 20120608
  Serious: Yes (Other)
  Sender: FDA-Public Use
  Company Number: US-PFIZER INC-2012072516

PATIENT
  Sex: Female
  Weight: 86.168 kg

DRUGS (7)
  1. LYRICA [Suspect]
     Dosage: 75 MG, DAILY
     Route: 048
  2. NEXIUM [Concomitant]
     Indication: GASTROOESOPHAGEAL REFLUX DISEASE
     Dosage: UNK
  3. LYRICA [Suspect]
     Dosage: 75 MG, 2X/DAY
     Route: 048
     Dates: start: 20120101
  4. TOPROL-XL [Suspect]
     Indication: HYPOTENSION
     Dosage: UNK
  5. LYRICA [Suspect]
     Dosage: UNK
     Dates: start: 20120101
  6. CRESTOR [Suspect]
     Indication: BLOOD CHOLESTEROL INCREASED
     Dosage: UNK
  7. LYRICA [Suspect]
     Indication: FIBROMYALGIA
     Dosage: TWO 75MG CAPSULES, 2X/DAY
     Route: 048
     Dates: start: 20110101

REACTIONS (7)
  - MALAISE [None]
  - DRUG INEFFECTIVE [None]
  - BLOOD CHOLESTEROL INCREASED [None]
  - PAIN [None]
  - DIZZINESS [None]
  - WEIGHT INCREASED [None]
  - INFLUENZA LIKE ILLNESS [None]
